FAERS Safety Report 10458551 (Version 1)
Quarter: 2014Q3

REPORT INFORMATION
  Report Type: Spontaneous
  Country: AU (occurrence: AU)
  Receive Date: 20140917
  Receipt Date: 20140917
  Transmission Date: 20150326
  Serious: Yes (Other)
  Sender: FDA-Public Use
  Company Number: AU-CIPLA LTD.-2014AU01343

PATIENT

DRUGS (1)
  1. LAMIVUDINE. [Suspect]
     Active Substance: LAMIVUDINE
     Indication: ANTIVIRAL PROPHYLAXIS
     Route: 064

REACTIONS (2)
  - Low birth weight baby [Unknown]
  - Foetal exposure during pregnancy [Unknown]
